FAERS Safety Report 16091301 (Version 1)
Quarter: 2019Q1

REPORT INFORMATION
  Report Type: Spontaneous
  Country: ES (occurrence: ES)
  Receive Date: 20190319
  Receipt Date: 20190319
  Transmission Date: 20190418
  Serious: Yes (Other)
  Sender: FDA-Public Use
  Company Number: ES-BAYER-2019-022096

PATIENT
  Age: 50 Year
  Sex: Male

DRUGS (1)
  1. STIVARGA [Suspect]
     Active Substance: REGORAFENIB
     Indication: GASTROINTESTINAL CARCINOMA
     Dosage: UNK
     Dates: start: 201311

REACTIONS (5)
  - Hypothyroidism [None]
  - Skin toxicity [None]
  - Hypertension [None]
  - Metastases to lung [None]
  - Headache [None]

NARRATIVE: CASE EVENT DATE: 201506
